FAERS Safety Report 13456901 (Version 2)
Quarter: 2017Q3

REPORT INFORMATION
  Report Type: Spontaneous
  Country: US (occurrence: US)
  Receive Date: 20170418
  Receipt Date: 20170703
  Transmission Date: 20171127
  Serious: No
  Sender: FDA-Public Use
  Company Number: US-JNJFOC-20170417251

PATIENT
  Age: 55 Year
  Sex: Female
  Weight: 90.72 kg

DRUGS (1)
  1. STELARA [Suspect]
     Active Substance: USTEKINUMAB
     Indication: PSORIATIC ARTHROPATHY
     Route: 058
     Dates: start: 2016

REACTIONS (5)
  - Drug dose omission [Unknown]
  - Pain [Unknown]
  - Syringe issue [Unknown]
  - Herpes zoster [Unknown]
  - Psoriasis [Unknown]

NARRATIVE: CASE EVENT DATE: 201703
